FAERS Safety Report 22756440 (Version 3)
Quarter: 2023Q4

REPORT INFORMATION
  Report Type: Spontaneous
  Country: JP (occurrence: JP)
  Receive Date: 20230727
  Receipt Date: 20231108
  Transmission Date: 20240110
  Serious: Yes (Hospitalization)
  Sender: FDA-Public Use
  Company Number: JP-PFIZER INC-PV202300128396

PATIENT
  Age: 77 Year
  Sex: Female

DRUGS (5)
  1. AXITINIB [Suspect]
     Active Substance: AXITINIB
     Indication: Metastatic renal cell carcinoma
     Dosage: 5 MG, 2X/DAY
  2. AXITINIB [Suspect]
     Active Substance: AXITINIB
     Dosage: 1 MG, 2X/DAY
  3. AXITINIB [Suspect]
     Active Substance: AXITINIB
     Dosage: 2 MG, 2X/DAY
  4. AXITINIB [Suspect]
     Active Substance: AXITINIB
     Dosage: 4 MG, DAILY
  5. PEMBROLIZUMAB [Concomitant]
     Active Substance: PEMBROLIZUMAB
     Indication: Metastatic renal cell carcinoma
     Dosage: 200 MG/BODY/3 WEEKS

REACTIONS (2)
  - Hypothyroidism [Recovered/Resolved]
  - Hyperammonaemia [Recovered/Resolved]
